FAERS Safety Report 4886370-9 (Version None)
Quarter: 2006Q1

REPORT INFORMATION
  Report Type: 
  Country: None (occurrence: None)
  Receive Date: 20060120
  Receipt Date: 20050916
  Transmission Date: 20060701
  Serious: Yes (Hospitalization, Disabling)
  Sender: FDA-Public Use
  Company Number: US-MERCK-0509USA02400

PATIENT
  Age: 52 Year
  Sex: Male
  Weight: 89 kg

DRUGS (6)
  1. VIOXX [Suspect]
     Indication: PAIN
     Route: 048
     Dates: start: 20001201, end: 20040901
  2. ALLEGRA [Concomitant]
     Indication: HYPERSENSITIVITY
     Route: 065
  3. DIOVAN [Concomitant]
     Indication: HYPERTENSION
     Route: 065
     Dates: start: 20000101, end: 20040101
  4. GLUCOPHAGE [Concomitant]
     Indication: BLOOD GLUCOSE INCREASED
     Route: 065
  5. LAMISIL [Concomitant]
     Route: 065
  6. ZESTRIL [Concomitant]
     Indication: HYPERTENSION
     Route: 065
     Dates: start: 20000101, end: 20000101

REACTIONS (11)
  - ARTHROPATHY [None]
  - ATRIAL FIBRILLATION [None]
  - BLOOD CREATINE PHOSPHOKINASE INCREASED [None]
  - CORONARY ARTERY DISEASE [None]
  - CORONARY ARTERY OCCLUSION [None]
  - DIABETES MELLITUS NON-INSULIN-DEPENDENT [None]
  - HYPERCHOLESTEROLAEMIA [None]
  - HYPERTENSION [None]
  - MYOCARDIAL INFARCTION [None]
  - RENAL STONE REMOVAL [None]
  - SHOCK [None]
